FAERS Safety Report 5689565-X (Version None)
Quarter: 2008Q1

REPORT INFORMATION
  Report Type: 
  Country: None (occurrence: None)
  Receive Date: 20080331
  Receipt Date: 20080319
  Transmission Date: 20080703
  Serious: Yes (Other)
  Sender: FDA-Public Use
  Company Number: US-PFIZER INC-2008009087

PATIENT
  Age: 55 Year
  Sex: Female
  Weight: 50 kg

DRUGS (5)
  1. CHANTIX [Suspect]
     Indication: SMOKING CESSATION THERAPY
     Route: 048
  2. VITAMINS [Concomitant]
  3. MEDROXYPROGESTERONE [Concomitant]
  4. ESTROGENS ESTERFIED/METHYLTESTOSTERONE [Concomitant]
  5. LORAZEPAM [Concomitant]
     Indication: BEREAVEMENT REACTION

REACTIONS (4)
  - HYPERSENSITIVITY [None]
  - LOCAL SWELLING [None]
  - RASH [None]
  - URTICARIA [None]
